FAERS Safety Report 8207620-7 (Version None)
Quarter: 2012Q1

REPORT INFORMATION
  Report Type: 
  Country: None (occurrence: None)
  Receive Date: 20120314
  Receipt Date: 20120314
  Transmission Date: 20120608
  Serious: No
  Sender: FDA-Public Use
  Company Number: None

PATIENT
  Sex: Female
  Weight: 124.28 kg

DRUGS (1)
  1. CEFTRIAXONE [Suspect]
     Indication: BRONCHOPNEUMONIA
     Dosage: 1 GRAM
     Route: 042
     Dates: start: 20120312, end: 20120313

REACTIONS (1)
  - URTICARIA [None]
